FAERS Safety Report 12539243 (Version 2)
Quarter: 2016Q3

REPORT INFORMATION
  Report Type: Spontaneous
  Country: JP (occurrence: JP)
  Receive Date: 20160708
  Receipt Date: 20160812
  Transmission Date: 20161109
  Serious: Yes (Other)
  Sender: FDA-Public Use
  Company Number: PHJP2016JP019336

PATIENT
  Age: 66 Year
  Sex: Female

DRUGS (2)
  1. AFINITOR [Suspect]
     Active Substance: EVEROLIMUS
     Indication: BREAST CANCER
     Dosage: 5 MG, QD
     Route: 048
     Dates: start: 20140515, end: 20160421
  2. AROMASIN [Concomitant]
     Active Substance: EXEMESTANE
     Indication: BREAST CANCER
     Dosage: 25 MG, QD
     Route: 065
     Dates: start: 20140515, end: 20160421

REACTIONS (11)
  - Malaise [Recovered/Resolved]
  - Interstitial lung disease [Unknown]
  - Alanine aminotransferase increased [Recovering/Resolving]
  - Metastases to lymph nodes [Unknown]
  - Aspartate aminotransferase increased [Recovering/Resolving]
  - Stomatitis [Recovered/Resolved]
  - Metastases to liver [Unknown]
  - Epistaxis [Recovered/Resolved]
  - Decreased appetite [Recovered/Resolved]
  - Anaemia [Recovered/Resolved]
  - Dysgeusia [Recovered/Resolved]

NARRATIVE: CASE EVENT DATE: 201405
